FAERS Safety Report 6084376-8 (Version None)
Quarter: 2009Q1

REPORT INFORMATION
  Report Type: 
  Country: None (occurrence: None)
  Receive Date: 20090219
  Receipt Date: 20090213
  Transmission Date: 20090719
  Serious: Yes (Other)
  Sender: FDA-Public Use
  Company Number: A0768467A

PATIENT

DRUGS (2)
  1. VALTREX [Suspect]
     Indication: GENITAL HERPES
     Dosage: 1G PER DAY
     Dates: start: 20050101
  2. UNKNOWN [Concomitant]

REACTIONS (14)
  - ABDOMINAL PAIN UPPER [None]
  - ABNORMAL FAECES [None]
  - ACNE [None]
  - DERMATITIS DIAPER [None]
  - DIARRHOEA [None]
  - DRUG EXPOSURE DURING PREGNANCY [None]
  - DRUG EXPOSURE VIA BREAST MILK [None]
  - FOOD ALLERGY [None]
  - HERPES VIRUS INFECTION [None]
  - MUCOUS STOOLS [None]
  - NAUSEA [None]
  - PAINFUL DEFAECATION [None]
  - PANCREATIC INSUFFICIENCY [None]
  - VOMITING [None]
